FAERS Safety Report 17306302 (Version 2)
Quarter: 2020Q1

REPORT INFORMATION
  Report Type: Spontaneous
  Country: FR (occurrence: FR)
  Receive Date: 20200123
  Receipt Date: 20200211
  Transmission Date: 20200409
  Serious: Yes (Other)
  Sender: FDA-Public Use
  Company Number: FR-AUROBINDO-AUR-APL-2020-003017

PATIENT
  Age: 26 Year
  Sex: Female

DRUGS (5)
  1. MORPHINE [Suspect]
     Active Substance: MORPHINE
     Indication: PAIN
     Dosage: 5 MILLIGRAM, EVERY FOUR HOUR
     Route: 041
     Dates: start: 20191212
  2. SUFENTANIL [Suspect]
     Active Substance: SUFENTANIL
     Indication: PAIN
     Dosage: 10 MICROGRAM, EVERY HOUR
     Route: 041
     Dates: start: 20191031
  3. PROPOFOL FRESENIUS [Suspect]
     Active Substance: PROPOFOL
     Indication: SEDATION
     Dosage: UNK, VARIABLE
     Route: 041
     Dates: start: 20191031
  4. PANTOPRAZOLE SODIUM. [Suspect]
     Active Substance: PANTOPRAZOLE SODIUM
     Indication: PRODUCT USED FOR UNKNOWN INDICATION
     Dosage: 40 MILLIGRAM, ONCE A DAY
     Route: 041
     Dates: start: 20191028
  5. LANSOPRAZOLE MYLAN [Suspect]
     Active Substance: LANSOPRAZOLE
     Indication: PRODUCT USED FOR UNKNOWN INDICATION
     Dosage: 40 MILLIGRAM, ONCE A DAY
     Route: 048
     Dates: start: 20191116

REACTIONS (2)
  - Pancreatitis [Unknown]
  - Hyperlipasaemia [Recovering/Resolving]

NARRATIVE: CASE EVENT DATE: 20191101
